FAERS Safety Report 4912726-1 (Version None)
Quarter: 2006Q1

REPORT INFORMATION
  Report Type: 
  Country: None (occurrence: None)
  Receive Date: 20060215
  Receipt Date: 20051020
  Transmission Date: 20060701
  Serious: Yes (Hospitalization, Other)
  Sender: FDA-Public Use
  Company Number: US-MERCK-0510USA08476

PATIENT
  Age: 65 Year
  Sex: Female

DRUGS (1)
  1. VIOXX [Suspect]
     Route: 048
     Dates: start: 20020101, end: 20040801

REACTIONS (5)
  - BLINDNESS [None]
  - CEREBROVASCULAR ACCIDENT [None]
  - RETINAL HAEMORRHAGE [None]
  - RETINAL VEIN OCCLUSION [None]
  - VISION BLURRED [None]
